FAERS Safety Report 7043943-5 (Version None)
Quarter: 2010Q4

REPORT INFORMATION
  Report Type: 
  Country: None (occurrence: None)
  Receive Date: 20101008
  Receipt Date: 20101008
  Transmission Date: 20110411
  Serious: Yes (Other)
  Sender: FDA-Public Use
  Company Number: None

PATIENT
  Age: 6 Year
  Sex: Female
  Weight: 34.0198 kg

DRUGS (2)
  1. VYVANSE [Suspect]
     Indication: ATTENTION DEFICIT/HYPERACTIVITY DISORDER
     Dosage: 1 CAPSUAL DAILY
     Dates: start: 20100814, end: 20100916
  2. FOCALIN [Suspect]
     Indication: ATTENTION DEFICIT/HYPERACTIVITY DISORDER
     Dosage: 1 CAPSUAL DAILY
     Dates: start: 20100917, end: 20100919

REACTIONS (6)
  - ABDOMINAL PAIN UPPER [None]
  - AGGRESSION [None]
  - DYSKINESIA [None]
  - HALLUCINATION [None]
  - HEADACHE [None]
  - SUICIDAL IDEATION [None]
